FAERS Safety Report 20348271 (Version 2)
Quarter: 2022Q1

REPORT INFORMATION
  Report Type: Report from Study
  Country: US (occurrence: US)
  Receive Date: 20220119
  Receipt Date: 20220312
  Transmission Date: 20220424
  Serious: No
  Sender: FDA-Public Use
  Company Number: US-NOVARTISTESTPH-NVSC2022US004375

PATIENT
  Age: 31 Year
  Sex: Female

DRUGS (2)
  1. COSENTYX [Suspect]
     Active Substance: SECUKINUMAB
     Indication: Psoriasis
     Dosage: UNK
     Route: 065
  2. COSENTYX [Suspect]
     Active Substance: SECUKINUMAB
     Indication: Psoriatic arthropathy
     Dosage: 300 MG, QMO (BENEATH THE SKIN, USUALLY VIA INJECTION)
     Route: 058
     Dates: start: 20210301

REACTIONS (4)
  - Condition aggravated [Unknown]
  - Maternal exposure during pregnancy [Unknown]
  - Maternal exposure during breast feeding [Unknown]
  - Drug ineffective [Unknown]

NARRATIVE: CASE EVENT DATE: 20200519
